FAERS Safety Report 19485516 (Version 2)
Quarter: 2021Q3

REPORT INFORMATION
  Report Type: Spontaneous
  Country: US (occurrence: US)
  Receive Date: 20210702
  Receipt Date: 20210715
  Transmission Date: 20211014
  Serious: Yes (Other)
  Sender: FDA-Public Use
  Company Number: US-UCBSA-2021021821

PATIENT
  Sex: Female
  Weight: 121.08 kg

DRUGS (1)
  1. CIMZIA [Suspect]
     Active Substance: CERTOLIZUMAB PEGOL
     Indication: RHEUMATOID ARTHRITIS
     Dosage: 400 MILLIGRAM, EV 4 WEEKS
     Route: 058
     Dates: start: 201809

REACTIONS (4)
  - Product dose omission issue [Unknown]
  - Hypersensitivity [Unknown]
  - Weight decreased [Unknown]
  - Gastric disorder [Unknown]
